APPROVED DRUG PRODUCT: DACTINOMYCIN
Active Ingredient: DACTINOMYCIN
Strength: 0.5MG/VIAL
Dosage Form/Route: INJECTABLE;INJECTION
Application: A202562 | Product #001
Applicant: AMERICAN REGENT INC
Approved: Aug 23, 2013 | RLD: No | RS: No | Type: DISCN